FAERS Safety Report 8169221-9 (Version None)
Quarter: 2012Q1

REPORT INFORMATION
  Report Type: 
  Country: None (occurrence: None)
  Receive Date: 20120227
  Receipt Date: 20120216
  Transmission Date: 20120608
  Serious: Yes (Other)
  Sender: FDA-Public Use
  Company Number: FR-ASTRAZENECA-2012SE11696

PATIENT
  Age: 63 Year
  Sex: Male

DRUGS (9)
  1. DEDROGYL [Concomitant]
  2. VITAMINES B1 B6 [Concomitant]
  3. TRANXENE [Concomitant]
  4. ACETAMINOPHEN [Concomitant]
  5. NEXIUM [Suspect]
     Route: 048
     Dates: start: 20120113, end: 20120121
  6. IMOVANE [Concomitant]
  7. LEVOFLOXACIN [Suspect]
     Indication: OSTEITIS
     Route: 048
     Dates: start: 20120113, end: 20120121
  8. OXAZEPAM [Concomitant]
  9. AUGMENTIN '125' [Suspect]
     Indication: OSTEITIS
     Route: 048
     Dates: start: 20120113, end: 20120121

REACTIONS (1)
  - VASCULITIS [None]
